FAERS Safety Report 9080413 (Version 1)
Quarter: 2013Q1

REPORT INFORMATION
  Report Type: Spontaneous
  Country: BR (occurrence: BR)
  Receive Date: 20130218
  Receipt Date: 20130218
  Transmission Date: 20140127
  Serious: Yes (Other)
  Sender: FDA-Public Use
  Company Number: BR-AMGEN-BRASP2012083257

PATIENT
  Age: 66 Year
  Sex: Female
  Weight: 91 kg

DRUGS (9)
  1. ENBREL [Suspect]
     Indication: RHEUMATOID ARTHRITIS
     Dosage: 50 MG, 1/XWEEK
     Route: 058
     Dates: start: 201212
  2. PREDNISONE [Suspect]
     Dosage: UNK
     Dates: start: 1982
  3. LOSARTAN [Concomitant]
     Dosage: UNK
     Dates: start: 1992
  4. FUROSEMIDE [Concomitant]
     Dosage: UNK
     Dates: start: 1992
  5. ALDACTONE                          /00006201/ [Concomitant]
     Dosage: UNK
     Dates: start: 1992
  6. CONCOR [Concomitant]
     Dosage: UNK
     Dates: start: 1992
  7. SIMVASTATIN [Concomitant]
     Dosage: UNK
     Dates: start: 1992
  8. SERETIDE [Concomitant]
     Dosage: UNK
  9. SUSTRATE [Concomitant]
     Dosage: UNK

REACTIONS (4)
  - Spinal fracture [Unknown]
  - Bone disorder [Unknown]
  - Pneumonia [Unknown]
  - Influenza [Not Recovered/Not Resolved]
